FAERS Safety Report 18375909 (Version 1)
Quarter: 2020Q4

REPORT INFORMATION
  Report Type: Spontaneous
  Country: US (occurrence: US)
  Receive Date: 20201010
  Receipt Date: 20201010
  Transmission Date: 20210114
  Serious: Yes (Other)
  Sender: FDA-Public Use
  Company Number: None

PATIENT
  Age: 84 Year
  Sex: Female

DRUGS (13)
  1. ATORVASTATIN 10 MG [Concomitant]
     Active Substance: ATORVASTATIN
  2. DILTIAZEM 120 MG [Concomitant]
  3. CAPECITABINE. [Suspect]
     Active Substance: CAPECITABINE
     Indication: PANCREATIC CARCINOMA
     Route: 048
     Dates: start: 20200921, end: 20200921
  4. RALOXIFENE 60 MG [Concomitant]
     Active Substance: RALOXIFENE
  5. CALCIUM 500 MG [Concomitant]
  6. MULTIVITAMIN [Concomitant]
     Active Substance: VITAMINS
  7. FISH OIL 1000 MG [Concomitant]
  8. XARELTO [Concomitant]
     Active Substance: RIVAROXABAN
  9. AMIODARONE 200 MG [Concomitant]
     Active Substance: AMIODARONE
  10. FUROSEMIDE 20 MG [Concomitant]
     Active Substance: FUROSEMIDE
  11. LEVOTHYROXINE. [Concomitant]
     Active Substance: LEVOTHYROXINE
  12. METOPROLOL TARTRATE 25 MG [Concomitant]
     Active Substance: METOPROLOL TARTRATE
  13. CAPECITABINE. [Suspect]
     Active Substance: CAPECITABINE
     Indication: PANCREATIC CARCINOMA
     Route: 048
     Dates: start: 20200921, end: 20200921

REACTIONS (2)
  - Renal impairment [None]
  - Laboratory test abnormal [None]

NARRATIVE: CASE EVENT DATE: 20200921
